FAERS Safety Report 16163323 (Version 1)
Quarter: 2019Q2

REPORT INFORMATION
  Report Type: Spontaneous
  Country: FR (occurrence: FR)
  Receive Date: 20190405
  Receipt Date: 20190405
  Transmission Date: 20190711
  Serious: Yes (Hospitalization)
  Sender: FDA-Public Use
  Company Number: FR-009507513-1904FRA000958

PATIENT
  Age: 64 Year
  Sex: Female
  Weight: 62 kg

DRUGS (2)
  1. CEFOTAXIME SODIUM [Suspect]
     Active Substance: CEFOTAXIME SODIUM
     Indication: STERNITIS
     Dosage: 2G TID THEN 1G TID FROM THE 08-MAR
     Route: 042
     Dates: start: 20190304
  2. CUBICIN [Suspect]
     Active Substance: DAPTOMYCIN
     Indication: STERNITIS
     Dosage: 500 MG QD THEN 500 MG / 48H FROM 08-MAR
     Route: 042
     Dates: start: 20190212

REACTIONS (1)
  - Disseminated intravascular coagulation [Not Recovered/Not Resolved]

NARRATIVE: CASE EVENT DATE: 20190315
